FAERS Safety Report 6165445-0 (Version None)
Quarter: 2009Q2

REPORT INFORMATION
  Report Type: 
  Country: None (occurrence: None)
  Receive Date: 20090423
  Receipt Date: 20090420
  Transmission Date: 20091009
  Serious: Yes (Death, Other)
  Sender: FDA-Public Use
  Company Number: PHFR2007IE03539

PATIENT
  Sex: Male

DRUGS (4)
  1. CLOZARIL [Suspect]
     Indication: SCHIZOPHRENIA
     Route: 048
     Dates: start: 20050302
  2. ACETAMINOPHEN [Concomitant]
  3. MIRTAZAPINE [Concomitant]
  4. DIAZEPAM [Concomitant]

REACTIONS (12)
  - ANTIPSYCHOTIC DRUG LEVEL INCREASED [None]
  - AORTIC STENOSIS [None]
  - ARTERIAL OCCLUSIVE DISEASE [None]
  - ARTERIOSCLEROSIS CORONARY ARTERY [None]
  - BENIGN PROSTATIC HYPERPLASIA [None]
  - CORONARY ARTERY THROMBOSIS [None]
  - HEPATIC STEATOSIS [None]
  - LOSS OF CONSCIOUSNESS [None]
  - MYOCARDIAL FIBROSIS [None]
  - PULMONARY CONGESTION [None]
  - PULMONARY EMBOLISM [None]
  - RESUSCITATION [None]
